FAERS Safety Report 8023332-7 (Version None)
Quarter: 2012Q1

REPORT INFORMATION
  Report Type: 
  Country: None (occurrence: None)
  Receive Date: 20120104
  Receipt Date: 20111228
  Transmission Date: 20120608
  Serious: Yes (Other)
  Sender: FDA-Public Use
  Company Number: CA-ROCHE-GNE285780

PATIENT
  Sex: Female

DRUGS (1)
  1. XOLAIR [Suspect]
     Indication: ASTHMA
     Dosage: 225 MG, UNK, VIAL
     Route: 058
     Dates: start: 20080717

REACTIONS (7)
  - HEART RATE INCREASED [None]
  - PYREXIA [None]
  - BRONCHITIS [None]
  - OROPHARYNGEAL PAIN [None]
  - LARYNGITIS [None]
  - BLOOD PRESSURE DECREASED [None]
  - PNEUMONIA [None]
